FAERS Safety Report 5695418-3 (Version None)
Quarter: 2008Q2

REPORT INFORMATION
  Report Type: 
  Country: None (occurrence: None)
  Receive Date: 20080403
  Receipt Date: 20080320
  Transmission Date: 20081010
  Serious: Yes (Hospitalization)
  Sender: FDA-Public Use
  Company Number: 230333J08USA

PATIENT
  Age: 48 Year
  Sex: Female
  Weight: 137.4399 kg

DRUGS (3)
  1. REBIF [Suspect]
     Indication: MULTIPLE SCLEROSIS
     Dosage: 44 MCG, 3 IN 1 WEEKS, SUBCUTANEOUS
     Route: 058
     Dates: start: 20060722
  2. ZANTAC [Concomitant]
  3. UNSPECIFIED MEDICATIONS (ALL OTHER THERAPEUTIC PRODUCTS) [Concomitant]

REACTIONS (4)
  - BILE DUCT OBSTRUCTION [None]
  - DIARRHOEA [None]
  - PANCREATITIS [None]
  - VOMITING [None]
